FAERS Safety Report 14167244 (Version 2)
Quarter: 2018Q1

REPORT INFORMATION
  Report Type: Spontaneous
  Country: FR (occurrence: FR)
  Receive Date: 20171107
  Receipt Date: 20180301
  Transmission Date: 20180508
  Serious: Yes (Hospitalization)
  Sender: FDA-Public Use
  Company Number: FR-GILEAD-2017-0302996

PATIENT
  Age: 31 Year
  Sex: Male

DRUGS (6)
  1. PREZISTA [Suspect]
     Active Substance: DARUNAVIR ETHANOLATE
     Indication: HIV INFECTION
     Dosage: 800 UG, QD
     Route: 048
     Dates: start: 20171014, end: 20171023
  2. BENZATHINE BENZYLPENICILLIN [Suspect]
     Active Substance: PENICILLIN G BENZATHINE
     Indication: SYPHILIS
     Dosage: 2.4 KIU, QD
     Route: 030
     Dates: start: 20171010, end: 20171010
  3. TRUVADA [Suspect]
     Active Substance: EMTRICITABINE\TENOFOVIR DISOPROXIL FUMARATE
     Indication: HIV INFECTION
     Dosage: 1 DF, QD
     Route: 048
     Dates: start: 20171014, end: 20171023
  4. NORVIR [Suspect]
     Active Substance: RITONAVIR
     Indication: HIV INFECTION
     Dosage: 100 MG, QD
     Route: 048
     Dates: start: 20171014, end: 20171023
  5. BACTRIM [Concomitant]
     Active Substance: SULFAMETHOXAZOLE\TRIMETHOPRIM
     Dosage: UNK
     Dates: start: 20171005, end: 20171018
  6. PENICILLIN                         /00000901/ [Concomitant]
     Active Substance: PENICILLIN G
     Dosage: UNK

REACTIONS (3)
  - Conjunctivitis [Recovered/Resolved]
  - Rash morbilliform [Recovering/Resolving]
  - Pyrexia [Recovered/Resolved]

NARRATIVE: CASE EVENT DATE: 20171023
